FAERS Safety Report 8053362-0 (Version None)
Quarter: 2011Q4

REPORT INFORMATION
  Report Type: 
  Country: None (occurrence: None)
  Receive Date: 20111213
  Receipt Date: 20110907
  Transmission Date: 20120403
  Serious: No
  Sender: FDA-Public Use
  Company Number: 2011SP042327

PATIENT
  Age: 28 Year
  Sex: Female

DRUGS (4)
  1. LEXAPRO [Concomitant]
  2. SAPHRIS [Suspect]
     Indication: BIPOLAR DISORDER
     Dosage: 5 MG;HS
  3. SSRI [Concomitant]
  4. LAMICTAL [Concomitant]

REACTIONS (4)
  - DYSPNOEA [None]
  - INAPPROPRIATE SCHEDULE OF DRUG ADMINISTRATION [None]
  - OEDEMA PERIPHERAL [None]
  - UNDERDOSE [None]
